FAERS Safety Report 21754586 (Version 1)
Quarter: 2022Q4

REPORT INFORMATION
  Report Type: Spontaneous
  Country: US (occurrence: None)
  Receive Date: 20221219
  Receipt Date: 20221219
  Transmission Date: 20230113
  Serious: No
  Sender: FDA-Public Use
  Company Number: None

PATIENT
  Age: 69 Year
  Sex: Female

DRUGS (1)
  1. ENBREL [Suspect]
     Active Substance: ETANERCEPT
     Indication: Rheumatoid arthritis
     Dosage: 50MG EVERY 7 DAYS SUBCUTANEOUSLY?
     Route: 058
     Dates: start: 20220225

REACTIONS (3)
  - Needle issue [None]
  - Device malfunction [None]
  - Product use issue [None]

NARRATIVE: CASE EVENT DATE: 20221219
